FAERS Safety Report 18981266 (Version 1)
Quarter: 2021Q1

REPORT INFORMATION
  Report Type: Spontaneous
  Country: US (occurrence: US)
  Receive Date: 20210308
  Receipt Date: 20210308
  Transmission Date: 20210420
  Serious: Yes (Other)
  Sender: FDA-Public Use
  Company Number: US-AMNEAL PHARMACEUTICALS-2021-AMRX-00685

PATIENT
  Sex: Male

DRUGS (2)
  1. PHENYTOIN SODIUM. [Suspect]
     Active Substance: PHENYTOIN SODIUM
     Indication: INTERMITTENT EXPLOSIVE DISORDER
     Dosage: 3 CAPSULES, 2X/DAY
     Route: 065
     Dates: start: 201904, end: 20210222
  2. LEXAPRO [Concomitant]
     Active Substance: ESCITALOPRAM OXALATE
     Indication: ANGER
     Dosage: UNK
     Route: 065

REACTIONS (10)
  - Pruritus [Recovered/Resolved]
  - Feeling abnormal [Not Recovered/Not Resolved]
  - Lethargy [Unknown]
  - Fatigue [Unknown]
  - Off label use [Unknown]
  - Hypersensitivity [Recovered/Resolved]
  - Purulent discharge [Recovered/Resolved]
  - Head discomfort [Not Recovered/Not Resolved]
  - Surgery [Unknown]
  - Rash [Recovered/Resolved]

NARRATIVE: CASE EVENT DATE: 201904
